FAERS Safety Report 4466774-9 (Version None)
Quarter: 2004Q4

REPORT INFORMATION
  Report Type: 
  Country: None (occurrence: None)
  Receive Date: 20041001
  Receipt Date: 20040920
  Transmission Date: 20050328
  Serious: Yes (Hospitalization)
  Sender: FDA-Public Use
  Company Number: 192476

PATIENT
  Age: 42 Year
  Sex: Female
  Weight: 61.2356 kg

DRUGS (8)
  1. AVONEX [Suspect]
     Indication: MULTIPLE SCLEROSIS
     Dosage: 30 MCG QW IM
     Route: 030
     Dates: start: 20021101, end: 20030401
  2. AVONEX [Suspect]
     Indication: MULTIPLE SCLEROSIS
     Dosage: 30 MCG QW IM
     Route: 030
     Dates: start: 20040108, end: 20040129
  3. AVONEX [Suspect]
     Indication: MULTIPLE SCLEROSIS
     Dosage: 30 MCG QW IM
     Route: 030
     Dates: start: 20040205
  4. AMANTADINE HCL [Concomitant]
  5. VALIUM [Concomitant]
  6. NEURONTIN [Concomitant]
  7. BACLOFEN [Concomitant]
  8. ZOLOFT [Concomitant]

REACTIONS (8)
  - BREAST CANCER FEMALE [None]
  - DIFFICULTY IN WALKING [None]
  - DYSPNOEA [None]
  - DYSTONIA [None]
  - FATIGUE [None]
  - INJECTION SITE PAIN [None]
  - MUSCULAR WEAKNESS [None]
  - TREMOR [None]
